FAERS Safety Report 7226169-1 (Version None)
Quarter: 2011Q1

REPORT INFORMATION
  Report Type: 
  Country: None (occurrence: None)
  Receive Date: 20110114
  Receipt Date: 20110107
  Transmission Date: 20110831
  Serious: Yes (Hospitalization)
  Sender: FDA-Public Use
  Company Number: US-BIOGENIDEC-2011BI001002

PATIENT
  Age: 43 Year
  Sex: Male

DRUGS (2)
  1. AVONEX [Suspect]
     Indication: MULTIPLE SCLEROSIS
     Route: 030
     Dates: start: 20070609
  2. AVONEX [Suspect]
     Route: 030
     Dates: start: 20030221

REACTIONS (15)
  - VISUAL IMPAIRMENT [None]
  - HYPOAESTHESIA [None]
  - BALANCE DISORDER [None]
  - DYSSTASIA [None]
  - HEMIPARESIS [None]
  - COGNITIVE DISORDER [None]
  - VISUAL ACUITY REDUCED [None]
  - ASTHENIA [None]
  - APHAGIA [None]
  - PERONEAL NERVE PALSY [None]
  - MOBILITY DECREASED [None]
  - HEADACHE [None]
  - ABASIA [None]
  - SPEECH DISORDER [None]
  - DIPLOPIA [None]
